FAERS Safety Report 8178404-3 (Version None)
Quarter: 2012Q1

REPORT INFORMATION
  Report Type: 
  Country: None (occurrence: None)
  Receive Date: 20120301
  Receipt Date: 20120220
  Transmission Date: 20120608
  Serious: Yes (Hospitalization)
  Sender: FDA-Public Use
  Company Number: US-ELI_LILLY_AND_COMPANY-US201007000915

PATIENT
  Sex: Female
  Weight: 63.946 kg

DRUGS (10)
  1. FORTEO [Suspect]
     Dosage: 20 UG, QD
  2. FORTEO [Suspect]
     Indication: OSTEOPOROSIS
     Dosage: 20 UG, QD
     Route: 065
     Dates: start: 20100617
  3. FORTEO [Suspect]
     Dosage: 20 UG, QD
     Route: 065
  4. FORTEO [Suspect]
     Dosage: 20 UG, QD
  5. FORTEO [Suspect]
     Dosage: 20 UG, QD
     Route: 065
  6. FORTEO [Suspect]
     Dosage: 20 UG, QD
     Route: 065
  7. FORTEO [Suspect]
     Dosage: 20 UG, QD
  8. FORTEO [Suspect]
     Dosage: 20 UG, QD
  9. FORTEO [Suspect]
     Dosage: 20 UG, QD
  10. FORTEO [Suspect]
     Dosage: 20 UG, QD

REACTIONS (26)
  - ANXIETY [None]
  - PIGMENTATION DISORDER [None]
  - SLEEP DISORDER DUE TO A GENERAL MEDICAL CONDITION [None]
  - PAIN IN EXTREMITY [None]
  - FALL [None]
  - FEELING ABNORMAL [None]
  - INJECTION SITE HAEMORRHAGE [None]
  - BLOOD CALCIUM INCREASED [None]
  - FOOT OPERATION [None]
  - MALAISE [None]
  - JOINT SWELLING [None]
  - INJECTION SITE DISCOLOURATION [None]
  - INJECTION SITE REACTION [None]
  - VERTIGO [None]
  - ASTHENIA [None]
  - INJECTION SITE HAEMATOMA [None]
  - MUSCLE SPASMS [None]
  - DRUG DOSE OMISSION [None]
  - BRONCHITIS [None]
  - RETCHING [None]
  - NAUSEA [None]
  - INFECTION [None]
  - FATIGUE [None]
  - INCORRECT STORAGE OF DRUG [None]
  - STRESS [None]
  - INSOMNIA [None]
